FAERS Safety Report 4951346-X (Version None)
Quarter: 2006Q1

REPORT INFORMATION
  Report Type: 
  Country: None (occurrence: None)
  Receive Date: 20060317
  Receipt Date: 20060302
  Transmission Date: 20060701
  Serious: Yes (Life-Threatening)
  Sender: FDA-Public Use
  Company Number: GXKR2006US01267

PATIENT
  Age: 54 Year
  Sex: Male

DRUGS (9)
  1. HALOPERIDOL [Suspect]
     Indication: DELIRIUM
     Dosage: SEE IMAGE
     Route: 030
  2. SULFAMETHOXAZOLE + TRIMETHOPRIM [Suspect]
     Indication: PNEUMONIA
     Dosage: 3 DOUBLE-STRENGTHS TABLETS
  3. PREDNISONE TAB [Concomitant]
  4. MYCOPHENOLATE MOFETIL [Concomitant]
  5. CASPOFUNGIN (CASPOFUNGIN) [Concomitant]
  6. VALGANCICLOVIR (VALGANCICLOVIR) [Concomitant]
  7. OXYCODONE (OXYCODONE) [Concomitant]
  8. PANTOPRAZOLE SODIUM [Concomitant]
  9. FUROSEMIDE [Concomitant]

REACTIONS (6)
  - AGITATION [None]
  - DEPRESSED LEVEL OF CONSCIOUSNESS [None]
  - DRUG EFFECT DECREASED [None]
  - DRUG INTERACTION [None]
  - EXTRAPYRAMIDAL DISORDER [None]
  - HYPOGLYCAEMIA [None]
